FAERS Safety Report 9594747 (Version 1)
Quarter: 2013Q3

REPORT INFORMATION
  Report Type: Spontaneous
  Country: US (occurrence: None)
  Receive Date: 20130927
  Receipt Date: 20130927
  Transmission Date: 20140515
  Serious: Yes (Hospitalization, Other)
  Sender: FDA-Public Use
  Company Number: CABO-13003120

PATIENT
  Age: 61 Year
  Sex: Female

DRUGS (7)
  1. COMETRIQ [Suspect]
     Indication: THYROID CANCER
     Route: 048
     Dates: start: 20130709, end: 20130725
  2. METFORMIN [Concomitant]
  3. JANUVIA [Concomitant]
  4. GLIMEPRIRIDE [Concomitant]
  5. RAMIPRIL [Concomitant]
  6. CLONIDINE [Concomitant]
  7. LEVOTHYROXINE [Concomitant]

REACTIONS (5)
  - Dehydration [None]
  - Overdose [None]
  - Aphagia [None]
  - Fluid intake reduced [None]
  - Rash erythematous [None]
